FAERS Safety Report 8050868-5 (Version None)
Quarter: 2012Q1

REPORT INFORMATION
  Report Type: 
  Country: None (occurrence: None)
  Receive Date: 20120117
  Receipt Date: 20120106
  Transmission Date: 20120608
  Serious: Yes (Hospitalization)
  Sender: FDA-Public Use
  Company Number: PHFR2011GB02642

PATIENT
  Sex: Male

DRUGS (2)
  1. CLOZARIL [Suspect]
     Dosage: UNK UKN, UNK
     Dates: start: 19970101
  2. CLOZARIL [Suspect]
     Dosage: UNK UKN, UNK
     Route: 048
     Dates: start: 20010701, end: 20110401

REACTIONS (9)
  - MALAISE [None]
  - ANGER [None]
  - AGGRESSION [None]
  - WHITE BLOOD CELL COUNT DECREASED [None]
  - MENTAL IMPAIRMENT [None]
  - SUSPICIOUSNESS [None]
  - AGITATION [None]
  - NEUTROPHIL COUNT DECREASED [None]
  - INCORRECT DOSE ADMINISTERED [None]
